FAERS Safety Report 9001107 (Version 2)
Quarter: 2013Q1

REPORT INFORMATION
  Report Type: Spontaneous
  Country: US (occurrence: US)
  Receive Date: 20130107
  Receipt Date: 20130125
  Transmission Date: 20140127
  Serious: Yes (Other)
  Sender: FDA-Public Use
  Company Number: US-SANOFI-AVENTIS-2012SA095262

PATIENT
  Age: 72 Year
  Sex: Female
  Weight: 81.64 kg

DRUGS (8)
  1. LANTUS SOLOSTAR [Suspect]
     Indication: TYPE 2 DIABETES MELLITUS
     Dosage: 22-24UNITS TWICE A DAY.
     Route: 058
     Dates: start: 2008
  2. SOLOSTAR [Suspect]
     Indication: TYPE 2 DIABETES MELLITUS
     Dates: start: 2008
  3. ACARBOSE [Concomitant]
  4. LEVOTHYROXINE [Concomitant]
  5. LEVOTHYROXINE [Concomitant]
  6. METFORMIN [Concomitant]
  7. SIMVASTATIN [Concomitant]
  8. VERAPAMIL [Concomitant]

REACTIONS (4)
  - Arthritis [Unknown]
  - Wheelchair user [Unknown]
  - Blood glucose increased [Unknown]
  - Medication error [Unknown]
